FAERS Safety Report 14349195 (Version 2)
Quarter: 2018Q1

REPORT INFORMATION
  Report Type: Spontaneous
  Country: US (occurrence: US)
  Receive Date: 20180104
  Receipt Date: 20180206
  Transmission Date: 20180509
  Serious: No
  Sender: FDA-Public Use
  Company Number: PHHY2018US000647

PATIENT
  Sex: Female

DRUGS (1)
  1. SYSTANE (HYPROMELLOSE 2910 (4000 MPA.S)) [Suspect]
     Active Substance: HYPROMELLOSE 2910 (4000 MPA.S)
     Indication: PRODUCT USED FOR UNKNOWN INDICATION
     Route: 047

REACTIONS (2)
  - Parosmia [Unknown]
  - Vision blurred [Not Recovered/Not Resolved]
